FAERS Safety Report 9671984 (Version 1)
Quarter: 2013Q4

REPORT INFORMATION
  Report Type: Spontaneous
  Country: US (occurrence: US)
  Receive Date: 20131106
  Receipt Date: 20131106
  Transmission Date: 20140711
  Serious: Yes (Other)
  Sender: FDA-Public Use
  Company Number: US-BAYER-2013-135384

PATIENT
  Sex: Female

DRUGS (2)
  1. BETASERON [Suspect]
  2. AVONEX [Suspect]
     Indication: MULTIPLE SCLEROSIS
     Dosage: 30 ?G, UNK
     Route: 030
     Dates: start: 19990215

REACTIONS (1)
  - Blindness [Recovered/Resolved]
